FAERS Safety Report 10161791 (Version 2)
Quarter: 2014Q3

REPORT INFORMATION
  Report Type: Spontaneous
  Country: CH (occurrence: None)
  Receive Date: 20140507
  Receipt Date: 20140702
  Transmission Date: 20150326
  Serious: Yes (Other)
  Sender: FDA-Public Use
  Company Number: 20140256

PATIENT
  Age: 41 Year
  Sex: Female

DRUGS (2)
  1. FERINJECT [Suspect]
     Active Substance: FERRIC CARBOXYMALTOSE
     Dosage: 500 MG 1 IN 1 TOTAL
     Route: 041
     Dates: start: 20140408, end: 20140408
  2. FERINJECT [Suspect]
     Active Substance: FERRIC CARBOXYMALTOSE
     Indication: IRON DEFICIENCY ANAEMIA
     Dosage: 500 MG 1 IN 1 TOTAL
     Route: 041
     Dates: start: 20140408, end: 20140408

REACTIONS (9)
  - Chest discomfort [None]
  - Erythema [None]
  - Pruritus [None]
  - Malaise [None]
  - Palpitations [None]
  - Rash [None]
  - Vertigo [None]
  - Throat tightness [None]
  - Hypotension [None]

NARRATIVE: CASE EVENT DATE: 20140408
